FAERS Safety Report 18766024 (Version 1)
Quarter: 2021Q1

REPORT INFORMATION
  Report Type: Spontaneous
  Country: CA (occurrence: CA)
  Receive Date: 20210120
  Receipt Date: 20210120
  Transmission Date: 20210419
  Serious: Yes (Other)
  Sender: FDA-Public Use
  Company Number: CA-JNJFOC-20210120156

PATIENT
  Age: 43 Year
  Sex: Male

DRUGS (6)
  1. LAX?A?DAY [Concomitant]
     Active Substance: POLYETHYLENE GLYCOL 3350
     Route: 048
  2. INVEGA SUSTENNA [Suspect]
     Active Substance: PALIPERIDONE PALMITATE
  3. LORAZEPAM. [Concomitant]
     Active Substance: LORAZEPAM
  4. INVEGA SUSTENNA [Suspect]
     Active Substance: PALIPERIDONE PALMITATE
     Indication: SCHIZOPHRENIA
     Route: 030
  5. INVEGA SUSTENNA [Suspect]
     Active Substance: PALIPERIDONE PALMITATE
  6. LOXAPINE. [Concomitant]
     Active Substance: LOXAPINE

REACTIONS (3)
  - Erection increased [Recovered/Resolved]
  - Spontaneous penile erection [Recovered/Resolved]
  - Penis disorder [Recovered/Resolved]
